FAERS Safety Report 20622970 (Version 1)
Quarter: 2022Q1

REPORT INFORMATION
  Report Type: Spontaneous
  Country: US (occurrence: US)
  Receive Date: 20220322
  Receipt Date: 20220322
  Transmission Date: 20220423
  Serious: Yes (Death)
  Sender: FDA-Public Use
  Company Number: US-KARYOPHARM-2021KPT001475

PATIENT

DRUGS (19)
  1. XPOVIO [Suspect]
     Active Substance: SELINEXOR
     Indication: Glioblastoma
     Dosage: 80 MG, WEEKLY
     Route: 048
     Dates: start: 202111, end: 202112
  2. ALPRAZOLAM [Concomitant]
     Active Substance: ALPRAZOLAM
  3. AVASTIN [Concomitant]
     Active Substance: BEVACIZUMAB
  4. CETIRIZINE [Concomitant]
     Active Substance: CETIRIZINE HYDROCHLORIDE
  5. CLOBAZAM [Concomitant]
     Active Substance: CLOBAZAM
  6. CLONAZEPAM [Concomitant]
     Active Substance: CLONAZEPAM
  7. DEXAMETHASONE [Concomitant]
     Active Substance: DEXAMETHASONE
  8. KEYTRUDA [Concomitant]
     Active Substance: PEMBROLIZUMAB
  9. LEVETIRACETAM [Concomitant]
     Active Substance: LEVETIRACETAM
  10. MIDAZOLAM [Concomitant]
     Active Substance: MIDAZOLAM
  11. ONDANSETRON [Concomitant]
     Active Substance: ONDANSETRON
  12. PANTOPRAZOLE [Concomitant]
     Active Substance: PANTOPRAZOLE
  13. PREDNISONE [Concomitant]
     Active Substance: PREDNISONE
  14. SEROQUEL [Concomitant]
     Active Substance: QUETIAPINE FUMARATE
  15. VIMPAT [Concomitant]
     Active Substance: LACOSAMIDE
  16. ZOFRAN [Concomitant]
     Active Substance: ONDANSETRON HYDROCHLORIDE
  17. ZONISAMIDE [Concomitant]
     Active Substance: ZONISAMIDE
  18. NAYZILAM [Concomitant]
     Active Substance: MIDAZOLAM
  19. STIVARGA [Concomitant]
     Active Substance: REGORAFENIB

REACTIONS (2)
  - Brain neoplasm [Fatal]
  - Off label use [Unknown]

NARRATIVE: CASE EVENT DATE: 20210101
